FAERS Safety Report 11053129 (Version 2)
Quarter: 2015Q2

REPORT INFORMATION
  Report Type: Spontaneous
  Country: US (occurrence: US)
  Receive Date: 20150421
  Receipt Date: 20150520
  Transmission Date: 20150821
  Serious: No
  Sender: FDA-Public Use
  Company Number: US-GLAXOSMITHKLINE-US2015GSK054034

PATIENT
  Sex: Female

DRUGS (14)
  1. ESTRADIOL. [Concomitant]
     Active Substance: ESTRADIOL
  2. CALCIUM [Concomitant]
     Active Substance: CALCIUM
  3. LOVASTATIN. [Concomitant]
     Active Substance: LOVASTATIN
  4. CARBIDOPA AND LEVODOPA [Concomitant]
     Active Substance: CARBIDOPA\LEVODOPA
  5. BENADRYL [Concomitant]
     Active Substance: DIPHENHYDRAMINE HYDROCHLORIDE
  6. VENTOLIN HFA [Suspect]
     Active Substance: ALBUTEROL SULFATE
     Indication: PRODUCT USED FOR UNKNOWN INDICATION
  7. ALBUTEROL INHALATIONAL POWDER [Suspect]
     Active Substance: ALBUTEROL
     Indication: PRODUCT USED FOR UNKNOWN INDICATION
  8. LOBELIA [Concomitant]
  9. GUAIFENESIN. [Concomitant]
     Active Substance: GUAIFENESIN
  10. KELP [Concomitant]
     Active Substance: KELP
  11. MORPHINE [Suspect]
     Active Substance: MORPHINE
     Indication: PRODUCT USED FOR UNKNOWN INDICATION
  12. LORAZEPAM. [Concomitant]
     Active Substance: LORAZEPAM
  13. PREDNISONE. [Concomitant]
     Active Substance: PREDNISONE
  14. ALLEGRA [Concomitant]
     Active Substance: FEXOFENADINE HYDROCHLORIDE

REACTIONS (4)
  - Cough [Unknown]
  - Arthralgia [Unknown]
  - Dyspnoea [Unknown]
  - Drug hypersensitivity [Unknown]
